FAERS Safety Report 7402828-2 (Version None)
Quarter: 2011Q2

REPORT INFORMATION
  Report Type: 
  Country: None (occurrence: None)
  Receive Date: 20110408
  Receipt Date: 20110315
  Transmission Date: 20111010
  Serious: No
  Sender: FDA-Public Use
  Company Number: US-B.I. PHARMACEUTICALS,INC./RIDGEFIELD-2011-BP-01260BP

PATIENT
  Sex: Female

DRUGS (10)
  1. CLONIDINE [Concomitant]
     Indication: HYPERTENSION
     Dosage: 0.2 MG
  2. CYMBALTA [Concomitant]
     Indication: NEURALGIA
     Dosage: 60 MG
  3. DILTIAZEM [Concomitant]
     Indication: CARDIAC DISORDER
  4. METOPROLOL [Concomitant]
     Dosage: 1.5 DAILY
  5. DIGOXIN [Concomitant]
     Indication: CARDIAC DISORDER
     Dosage: 0.125 MG
  6. PRADAXA [Suspect]
     Indication: ATRIAL FIBRILLATION
     Dosage: 300 MG
     Route: 048
     Dates: start: 20101201
  7. OXYCODONE/ACETAMINOPHEN [Concomitant]
     Indication: BACK DISORDER
     Dosage: 10/325 PRN
  8. PLAVIX [Concomitant]
     Indication: CARDIAC DISORDER
     Dosage: 37.5 MG
  9. SIMVASTATIN [Concomitant]
     Indication: BLOOD CHOLESTEROL INCREASED
     Dosage: 80 MG
  10. FUROSEMIDE [Concomitant]
     Indication: FLUID RETENTION
     Dosage: 60 MG

REACTIONS (12)
  - SOMNOLENCE [None]
  - ASTHENIA [None]
  - NAUSEA [None]
  - FATIGUE [None]
  - HEADACHE [None]
  - PAIN IN EXTREMITY [None]
  - BONE PAIN [None]
  - BACK PAIN [None]
  - DECREASED APPETITE [None]
  - DIZZINESS [None]
  - WEIGHT DECREASED [None]
  - ARTHRALGIA [None]
